FAERS Safety Report 4513317-7 (Version None)
Quarter: 2004Q4

REPORT INFORMATION
  Report Type: 
  Country: None (occurrence: None)
  Receive Date: 20041130
  Receipt Date: 20040802
  Transmission Date: 20050328
  Serious: No
  Sender: FDA-Public Use
  Company Number: US-BRISTOL-MYERS SQUIBB COMPANY-12658381

PATIENT
  Age: 62 Year
  Sex: Male
  Weight: 61 kg

DRUGS (7)
  1. ERBITUX [Suspect]
     Indication: COLON CANCER
     Route: 042
     Dates: start: 20040721, end: 20040721
  2. IRINOTECAN HCL [Suspect]
     Dates: start: 20040721, end: 20040721
  3. BENADRYL [Concomitant]
     Indication: PREMEDICATION
     Route: 042
     Dates: start: 20040721, end: 20040721
  4. DECADRON [Concomitant]
     Indication: PREMEDICATION
     Route: 042
     Dates: start: 20040721, end: 20040721
  5. SYNTHROID [Concomitant]
  6. MULTI-VITAMINS [Concomitant]
  7. HERBAL PREPARATION [Concomitant]

REACTIONS (4)
  - ABDOMINAL PAIN [None]
  - ACNE [None]
  - DIARRHOEA [None]
  - RASH ERYTHEMATOUS [None]
